FAERS Safety Report 15715419 (Version 2)
Quarter: 2019Q1

REPORT INFORMATION
  Report Type: Spontaneous
  Country: BR (occurrence: BR)
  Receive Date: 20181212
  Receipt Date: 20190123
  Transmission Date: 20190417
  Serious: Yes (Hospitalization, Other)
  Sender: FDA-Public Use
  Company Number: PHHY2018BR180177

PATIENT
  Sex: Male
  Weight: 50 kg

DRUGS (1)
  1. EXELON PATCH [Suspect]
     Active Substance: RIVASTIGMINE
     Indication: PARKINSON^S DISEASE
     Dosage: 13.3 MG QD (PATCH 15 (CM2), 27 MG RIVASTIGMINE BASE)
     Route: 062

REACTIONS (5)
  - Tremor [Recovering/Resolving]
  - Loss of consciousness [Recovering/Resolving]
  - Heart rate decreased [Recovering/Resolving]
  - Product adhesion issue [Recovering/Resolving]
  - Dementia Alzheimer^s type [Recovering/Resolving]
